FAERS Safety Report 4467152-9 (Version None)
Quarter: 2004Q4

REPORT INFORMATION
  Report Type: 
  Country: None (occurrence: None)
  Receive Date: 20041004
  Receipt Date: 20041004
  Transmission Date: 20050328
  Serious: Yes (Hospitalization)
  Sender: FDA-Public Use
  Company Number: None

PATIENT
  Sex: Female
  Weight: 101.6 kg

DRUGS (2)
  1. PACLITAXEL [Suspect]
  2. CISPLATIN [Suspect]

REACTIONS (1)
  - PULMONARY EMBOLISM [None]
